FAERS Safety Report 20330302 (Version 1)
Quarter: 2022Q1

REPORT INFORMATION
  Report Type: Report from Study
  Country: US (occurrence: US)
  Receive Date: 20220113
  Receipt Date: 20220113
  Transmission Date: 20220423
  Serious: Yes (Hospitalization, Other)
  Sender: FDA-Public Use
  Company Number: US-JNJFOC-20220108612

PATIENT
  Age: 83 Year
  Sex: Female

DRUGS (2)
  1. RIVAROXABAN [Suspect]
     Active Substance: RIVAROXABAN
     Indication: Atrial fibrillation
     Route: 048
     Dates: start: 2015
  2. RIVAROXABAN [Suspect]
     Active Substance: RIVAROXABAN
     Indication: Cerebrovascular accident prophylaxis
     Route: 048

REACTIONS (3)
  - Septic shock [Unknown]
  - Nephrolithiasis [Unknown]
  - Osteoporosis [Unknown]

NARRATIVE: CASE EVENT DATE: 20170101
